FAERS Safety Report 8600119-5 (Version None)
Quarter: 2012Q3

REPORT INFORMATION
  Report Type: 
  Country: None (occurrence: None)
  Receive Date: 20120817
  Receipt Date: 20120808
  Transmission Date: 20120928
  Serious: Yes (Hospitalization, Other)
  Sender: FDA-Public Use
  Company Number: US-ROXANE LABORATORIES, INC.-2012-RO-01685RO

PATIENT
  Sex: Male

DRUGS (12)
  1. VALIUM [Suspect]
     Indication: PAIN
  2. ASPIRIN [Concomitant]
     Dates: start: 20120104
  3. MORPHINE [Suspect]
     Indication: PAIN
  4. PREDNISONE TAB [Concomitant]
     Dates: start: 20120705, end: 20120710
  5. PLACEBO [Suspect]
     Indication: DIABETES MELLITUS
     Dates: start: 20100706
  6. AZITHROMYCIN [Concomitant]
  7. LANTUS [Suspect]
     Indication: DIABETES MELLITUS
  8. HUMALOG [Suspect]
     Indication: DIABETES MELLITUS
     Dates: start: 20110923
  9. EZETIMIBE [Concomitant]
  10. SAXAGLIPTIN [Suspect]
     Indication: DIABETES MELLITUS
     Dates: start: 20120706
  11. FERROUS SULFATE TAB [Concomitant]
     Dates: start: 20120705
  12. FOLIC ACID [Concomitant]
     Dates: start: 20120705

REACTIONS (8)
  - HYPERCAPNIA [None]
  - PULMONARY OEDEMA [None]
  - MENTAL STATUS CHANGES [None]
  - IRON DEFICIENCY ANAEMIA [None]
  - ANAEMIA FOLATE DEFICIENCY [None]
  - HYPOXIA [None]
  - CHRONIC OBSTRUCTIVE PULMONARY DISEASE [None]
  - MICROCYTOSIS [None]
